FAERS Safety Report 25796755 (Version 1)
Quarter: 2025Q3

REPORT INFORMATION
  Report Type: Spontaneous
  Country: US (occurrence: US)
  Receive Date: 20250912
  Receipt Date: 20250912
  Transmission Date: 20251021
  Serious: No
  Sender: ANI
  Company Number: US-ANIPHARMA-2025-US-016248

PATIENT
  Sex: Female

DRUGS (5)
  1. CORTICOTROPIN [Suspect]
     Active Substance: CORTICOTROPIN
     Indication: Keratitis
  2. VITAMIN B12 [Concomitant]
     Active Substance: CYANOCOBALAMIN
  3. EYE DROPS A/C [Concomitant]
  4. WELLBUTRIN SR [Concomitant]
     Active Substance: BUPROPION HYDROCHLORIDE
  5. STELARA [Concomitant]
     Active Substance: USTEKINUMAB

REACTIONS (3)
  - Rash [Unknown]
  - Erythema [Unknown]
  - Headache [Unknown]
